FAERS Safety Report 7842987-0 (Version None)
Quarter: 2011Q4

REPORT INFORMATION
  Report Type: 
  Country: None (occurrence: None)
  Receive Date: 20111025
  Receipt Date: 20111012
  Transmission Date: 20120403
  Serious: Yes (Congenital Anomaly)
  Sender: FDA-Public Use
  Company Number: GB-ELI_LILLY_AND_COMPANY-GB201110002695

PATIENT
  Sex: Female

DRUGS (14)
  1. PAROXETINE HCL [Concomitant]
  2. CYCLIZINE [Concomitant]
  3. CYCLIZINE [Concomitant]
  4. CHLORPROMAZINE [Concomitant]
     Dosage: 25 MG, UNKNOWN
     Route: 064
     Dates: start: 20100501
  5. CHLORPROMAZINE [Concomitant]
     Dosage: 50 MG, UNKNOWN
     Route: 064
  6. FLUOXETINE [Suspect]
     Dosage: 40 MG, UNKNOWN
     Route: 064
     Dates: start: 20110401
  7. CHLORPROMAZINE [Concomitant]
     Dosage: 25 MG, UNKNOWN
     Route: 064
     Dates: start: 20100501
  8. CHLORPROMAZINE [Concomitant]
     Dosage: 50 MG, UNKNOWN
     Route: 064
  9. FLUOXETINE [Suspect]
     Dosage: 20 MG, UNK
     Route: 064
     Dates: start: 20110117, end: 20110401
  10. FLUOXETINE [Suspect]
     Indication: MENTAL DISORDER
     Dosage: 20 MG, UNK
     Route: 064
     Dates: start: 20110117, end: 20110401
  11. OMEPRAZOLE [Concomitant]
  12. FLUOXETINE [Suspect]
     Dosage: 40 MG, UNKNOWN
     Route: 064
     Dates: start: 20110401
  13. OMEPRAZOLE [Concomitant]
  14. PAROXETINE HCL [Concomitant]

REACTIONS (2)
  - CLEFT PALATE [None]
  - MATERNAL EXPOSURE DURING PREGNANCY [None]
